FAERS Safety Report 10757189 (Version 1)
Quarter: 2015Q1

REPORT INFORMATION
  Report Type: Spontaneous
  Country: IT (occurrence: IT)
  Receive Date: 20150203
  Receipt Date: 20150203
  Transmission Date: 20150721
  Serious: Yes (Hospitalization)
  Sender: FDA-Public Use
  Company Number: IT-ROCHE-1530973

PATIENT
  Age: 52 Year
  Sex: Male

DRUGS (3)
  1. PEGASYS [Suspect]
     Active Substance: PEGINTERFERON ALFA-2A
     Indication: CHRONIC HEPATITIS C
     Route: 058
     Dates: start: 20130513, end: 20130618
  2. INCIVO [Suspect]
     Active Substance: TELAPREVIR
     Indication: CHRONIC HEPATITIS C
     Route: 065
     Dates: start: 20130513, end: 20130618
  3. COPEGUS [Suspect]
     Active Substance: RIBAVIRIN
     Indication: CHRONIC HEPATITIS C
     Route: 065
     Dates: start: 20130513, end: 20130618

REACTIONS (3)
  - Anaemia [Recovered/Resolved]
  - Neutropenia [Recovered/Resolved]
  - Follicle centre lymphoma, follicular grade I, II, III recurrent [Recovered/Resolved]

NARRATIVE: CASE EVENT DATE: 20130610
